FAERS Safety Report 19943151 (Version 1)
Quarter: 2021Q4

REPORT INFORMATION
  Report Type: Spontaneous
  Country: US (occurrence: US)
  Receive Date: 20211012
  Receipt Date: 20211012
  Transmission Date: 20220303
  Serious: No
  Sender: FDA-Public Use
  Company Number: US-SA-SAC20211007000329

PATIENT
  Age: 15 Year
  Sex: Female
  Weight: 57.6 kg

DRUGS (2)
  1. DUPIXENT [Suspect]
     Active Substance: DUPILUMAB
     Indication: Eczema
     Dosage: 200 MG, QOW
     Route: 058
     Dates: start: 20210325
  2. COVID-19 VACCINE [Concomitant]
     Indication: COVID-19 immunisation
     Dosage: UNK

REACTIONS (3)
  - Eczema [Unknown]
  - Intentional dose omission [Unknown]
  - Oral herpes [Unknown]

NARRATIVE: CASE EVENT DATE: 20210101
